FAERS Safety Report 23332844 (Version 1)
Quarter: 2023Q4

REPORT INFORMATION
  Report Type: Spontaneous
  Country: CH (occurrence: None)
  Receive Date: 20231222
  Receipt Date: 20231222
  Transmission Date: 20240109
  Serious: Yes (Other)
  Sender: FDA-Public Use
  Company Number: 2023A285299

PATIENT
  Age: 40 Year
  Sex: Female

DRUGS (8)
  1. OMEPRAZOLE [Suspect]
     Active Substance: OMEPRAZOLE
     Route: 048
  2. CEFAZOLIN [Concomitant]
     Active Substance: CEFAZOLIN
  3. OXYTOCIN [Concomitant]
     Active Substance: OXYTOCIN
  4. REMIFENTANIL [Concomitant]
     Active Substance: REMIFENTANIL
  5. LIDOCAINE [Concomitant]
     Active Substance: LIDOCAINE
  6. PROPOFOL [Concomitant]
     Active Substance: PROPOFOL
  7. SUCCINYLCHOLINE [Concomitant]
     Active Substance: SUCCINYLCHOLINE
  8. ROCURONIUM [Concomitant]
     Active Substance: ROCURONIUM BROMIDE

REACTIONS (2)
  - Premature delivery [Unknown]
  - Exposure during pregnancy [Unknown]
